FAERS Safety Report 10728076 (Version 2)
Quarter: 2015Q1

REPORT INFORMATION
  Report Type: Spontaneous
  Country: SI (occurrence: SI)
  Receive Date: 20150121
  Receipt Date: 20150218
  Transmission Date: 20150721
  Serious: No
  Sender: FDA-Public Use
  Company Number: SI-PFIZER INC-2015022758

PATIENT
  Age: 62 Year
  Sex: Female

DRUGS (9)
  1. TULIP [Concomitant]
     Active Substance: ATORVASTATIN
     Dosage: UNK
  2. NOLPAZA [Concomitant]
     Active Substance: PANTOPRAZOLE SODIUM
     Dosage: UNK
  3. ROCALTROL [Concomitant]
     Active Substance: CALCITRIOL
     Dosage: UNK
  4. CHAMPIX [Suspect]
     Active Substance: VARENICLINE TARTRATE
     Dosage: 1 MG, 2X/DAY
  5. ADALAT [Concomitant]
     Active Substance: NIFEDIPINE
     Dosage: UNK
  6. CARDURA XL [Concomitant]
     Active Substance: DOXAZOSIN MESYLATE
     Dosage: UNK
  7. EDEMID [Concomitant]
     Dosage: UNK
  8. ARANESP [Concomitant]
     Active Substance: DARBEPOETIN ALFA
     Dosage: UNK
  9. SODIUM BICARBONATE. [Concomitant]
     Active Substance: SODIUM BICARBONATE
     Dosage: UNK

REACTIONS (3)
  - Dizziness [Recovered/Resolved]
  - Vertigo [Recovered/Resolved]
  - Nausea [Recovered/Resolved]
